FAERS Safety Report 14113302 (Version 1)
Quarter: 2017Q4

REPORT INFORMATION
  Report Type: Spontaneous
  Country: US (occurrence: None)
  Receive Date: 20171022
  Receipt Date: 20171022
  Transmission Date: 20180321
  Serious: No
  Sender: FDA-Public Use
  Company Number: None

PATIENT
  Age: 57 Year
  Sex: Female

DRUGS (1)
  1. OCTREOTIDE. [Suspect]
     Active Substance: OCTREOTIDE

REACTIONS (3)
  - Abdominal distension [None]
  - Discomfort [None]
  - Gastric disorder [None]

NARRATIVE: CASE EVENT DATE: 20171022
